FAERS Safety Report 12916331 (Version 1)
Quarter: 2016Q4

REPORT INFORMATION
  Report Type: Spontaneous
  Country: US (occurrence: US)
  Receive Date: 20161103
  Receipt Date: 20161103
  Transmission Date: 20170207
  Serious: Yes (Disabling)
  Sender: FDA-Public Use
  Company Number: None

PATIENT
  Age: 68 Year
  Sex: Male
  Weight: 108 kg

DRUGS (6)
  1. SIMVASTATIN. [Concomitant]
     Active Substance: SIMVASTATIN
  2. CARBETOLOL [Concomitant]
  3. CLONAZEPAM. [Concomitant]
     Active Substance: CLONAZEPAM
  4. ADVIL [Concomitant]
     Active Substance: IBUPROFEN
  5. BESIVANCE [Suspect]
     Active Substance: BESIFLOXACIN
     Indication: CATARACT OPERATION
     Dosage: ?          QUANTITY:1 DROP(S);OTHER FREQUENCY:Q4HRS X4 DOSES QD;?
     Route: 047
     Dates: start: 20160930, end: 20161030
  6. LOSARTAN. [Concomitant]
     Active Substance: LOSARTAN

REACTIONS (2)
  - Photophobia [None]
  - Eye pain [None]

NARRATIVE: CASE EVENT DATE: 20160930
